FAERS Safety Report 14705886 (Version 2)
Quarter: 2018Q2

REPORT INFORMATION
  Report Type: Spontaneous
  Country: IT (occurrence: IT)
  Receive Date: 20180402
  Receipt Date: 20180424
  Transmission Date: 20180711
  Serious: Yes (Other)
  Sender: FDA-Public Use
  Company Number: IT-SA-2018SA047850

PATIENT
  Age: 26 Year
  Sex: Female

DRUGS (6)
  1. EUTIROX [Concomitant]
     Active Substance: LEVOTHYROXINE SODIUM
     Route: 048
  2. LEMTRADA [Suspect]
     Active Substance: ALEMTUZUMAB
     Indication: MULTIPLE SCLEROSIS
     Route: 041
     Dates: start: 20170206, end: 20170208
  3. CARBOLITHIUM [Concomitant]
     Active Substance: LITHIUM CARBONATE
     Route: 048
  4. TRANQUIRIT [Concomitant]
     Active Substance: DIAZEPAM
     Dosage: DOSE: 20 DROP
     Route: 048
  5. QUETIAPINE. [Concomitant]
     Active Substance: QUETIAPINE
     Route: 048
  6. SOLIAN [Concomitant]
     Active Substance: AMISULPRIDE
     Route: 048

REACTIONS (3)
  - Immune thrombocytopenic purpura [Unknown]
  - Gingival bleeding [Unknown]
  - Ecchymosis [Unknown]

NARRATIVE: CASE EVENT DATE: 20180206
